FAERS Safety Report 19891230 (Version 1)
Quarter: 2021Q3

REPORT INFORMATION
  Report Type: Spontaneous
  Country: GB (occurrence: GB)
  Receive Date: 20210928
  Receipt Date: 20210928
  Transmission Date: 20211014
  Serious: Yes (Other)
  Sender: FDA-Public Use
  Company Number: GB-ORGANON-O2109GBR002162

PATIENT
  Age: 72 Year
  Sex: Female

DRUGS (2)
  1. FOSAMAX [Suspect]
     Active Substance: ALENDRONATE SODIUM
     Dosage: 70 MILLIGRAM, QW(REPORTED AS 5 YEARS FULL DOSE)
     Route: 048
  2. FOSAMAX [Suspect]
     Active Substance: ALENDRONATE SODIUM
     Dosage: 35 MG WEEKLY
     Route: 048
     Dates: start: 2020

REACTIONS (7)
  - Hip fracture [Unknown]
  - Osteopenia [Unknown]
  - Body mass index decreased [Recovering/Resolving]
  - Hypothyroidism [Unknown]
  - Prescribed underdose [Unknown]
  - Osteonecrosis [Unknown]
  - Hip arthroplasty [Unknown]

NARRATIVE: CASE EVENT DATE: 2020
